FAERS Safety Report 5460834-1 (Version None)
Quarter: 2007Q3

REPORT INFORMATION
  Report Type: 
  Country: None (occurrence: None)
  Receive Date: 20070919
  Receipt Date: 20070917
  Transmission Date: 20080115
  Serious: No
  Sender: FDA-Public Use
  Company Number: US-BOEHRINGER INGELHEIM PHARMACEUTICALS, INC.-2007-BP-16872BP

PATIENT
  Sex: Male

DRUGS (3)
  1. FLOMAX [Suspect]
     Indication: BENIGN PROSTATIC HYPERPLASIA
     Route: 048
     Dates: start: 20070619
  2. LIPITOR [Concomitant]
  3. ASPIRIN [Concomitant]

REACTIONS (3)
  - BLOOD URINE PRESENT [None]
  - ORTHOSTATIC HYPOTENSION [None]
  - URETHRAL HAEMORRHAGE [None]
